FAERS Safety Report 15846844 (Version 1)
Quarter: 2019Q1

REPORT INFORMATION
  Report Type: Report from Study
  Country: IT (occurrence: IT)
  Receive Date: 20190121
  Receipt Date: 20190121
  Transmission Date: 20190417
  Serious: Yes (Hospitalization)
  Sender: FDA-Public Use
  Company Number: IT-TEVA-2019-IT-1001159

PATIENT
  Age: 47 Year
  Sex: Male
  Weight: 70 kg

DRUGS (3)
  1. OLANZAPINA ACTAVIS [Suspect]
     Active Substance: OLANZAPINE
     Route: 048
     Dates: start: 20180607, end: 20180608
  2. EN [Concomitant]
     Active Substance: DELORAZEPAM
     Dosage: 45 GTT
     Route: 048
     Dates: start: 20170610, end: 20180610
  3. DEPAKIN CHRONO 300 MG COMPRESSE A RILASCIO PROLUNGATO [Concomitant]
     Active Substance: VALPROIC ACID
     Route: 048
     Dates: start: 20170610, end: 20180610

REACTIONS (6)
  - Neuroleptic malignant syndrome [Recovered/Resolved]
  - Blood lactate dehydrogenase increased [Recovered/Resolved]
  - Hyperthermia [Recovered/Resolved]
  - Hypokalaemia [Recovered/Resolved]
  - Blood creatine phosphokinase increased [Recovered/Resolved]
  - Hypertension [Recovered/Resolved]

NARRATIVE: CASE EVENT DATE: 20180609
